FAERS Safety Report 5866059-X (Version None)
Quarter: 2008Q3

REPORT INFORMATION
  Report Type: 
  Country: None (occurrence: None)
  Receive Date: 20080829
  Receipt Date: 20080827
  Transmission Date: 20090109
  Serious: No
  Sender: FDA-Public Use
  Company Number: US-BOEHRINGER INGELHEIM GMBH, GERMANY-2008-BP-12778BP

PATIENT
  Age: 65 Year
  Sex: Female

DRUGS (4)
  1. MIRAPEX [Suspect]
     Indication: RESTLESS LEGS SYNDROME
     Route: 048
     Dates: start: 20080810, end: 20080810
  2. ZOCOR [Concomitant]
  3. LISINOPRIL [Concomitant]
  4. LEVOTHYROXINE [Concomitant]

REACTIONS (2)
  - UVULITIS [None]
  - VOMITING [None]
